FAERS Safety Report 4695269-2 (Version None)
Quarter: 2005Q2

REPORT INFORMATION
  Report Type: 
  Country: None (occurrence: None)
  Receive Date: 20050608
  Receipt Date: 20050114
  Transmission Date: 20051028
  Serious: Yes (Other)
  Sender: FDA-Public Use
  Company Number: 392624

PATIENT

DRUGS (2)
  1. ISOTRETINOIN [Suspect]
     Indication: ACNE
     Dosage: 20 MG 3 PER WEEK ORAL
     Route: 048
     Dates: start: 20040715, end: 20041215
  2. ISOTRETINOIN [Suspect]
     Indication: ROSACEA
     Dosage: 20 MG 3 PER WEEK ORAL
     Route: 048
     Dates: start: 20040715, end: 20041215

REACTIONS (1)
  - PREGNANCY [None]
